FAERS Safety Report 5233541-8 (Version None)
Quarter: 2007Q1

REPORT INFORMATION
  Report Type: 
  Country: None (occurrence: None)
  Receive Date: 20061204
  Receipt Date: 20060801
  Transmission Date: 20070707
  Serious: No
  Sender: FDA-Public Use
  Company Number: 2006-BP-06101BP

PATIENT
  Sex: Female

DRUGS (14)
  1. SPIRIVA [Suspect]
     Indication: CHRONIC OBSTRUCTIVE PULMONARY DISEASE
     Dosage: 18 MCG (18 MCG,QD),IH
     Route: 055
     Dates: start: 20060201
  2. SPIRIVA [Suspect]
  3. TRAMADOL HCL [Concomitant]
  4. VITAMIN E [Concomitant]
  5. DICLOFENAC SODIUM (DICLOFENAC) [Concomitant]
  6. GLIPIZIDE ER (GLIPIZIDE) [Concomitant]
  7. ASPIRIN [Concomitant]
  8. ATENOLOL [Concomitant]
  9. LEVOTHYROXINE SODIUM [Concomitant]
  10. ACTOS [Concomitant]
  11. LAMOTRIGINE [Concomitant]
  12. MICARDIS HCT (PRITOR /01506701/) [Concomitant]
  13. GABAPENTIN [Concomitant]
  14. ADVAIR (SERETIDE /01420901/) [Concomitant]

REACTIONS (1)
  - DRUG INEFFECTIVE [None]
